FAERS Safety Report 5088241-4 (Version None)
Quarter: 2006Q3

REPORT INFORMATION
  Report Type: 
  Country: None (occurrence: None)
  Receive Date: 20060821
  Receipt Date: 20060802
  Transmission Date: 20061208
  Serious: Yes (Hospitalization)
  Sender: FDA-Public Use
  Company Number: 228692

PATIENT
  Age: 65 Year
  Sex: Female
  Weight: 170 kg

DRUGS (5)
  1. AVASTIN [Suspect]
     Indication: BREAST CANCER
     Dosage: 10 MG/KG, Q2W, INTRAVENOUS
     Route: 042
     Dates: start: 20060322
  2. TAXOL [Suspect]
     Indication: BREAST CANCER
     Dosage: 175 MG/M2, Q2W, INTRAVENOUS
     Route: 042
  3. NEUPOGEN [Suspect]
     Indication: BREAST CANCER
     Dates: start: 20060323
  4. DOXORUBICIN HCL [Suspect]
     Indication: BREAST CANCER
     Dosage: 60 MG/M2, Q2W, INTRAVENOUS
     Route: 042
     Dates: start: 20060322
  5. CYCLOPHOSPHAMIDE [Suspect]
     Indication: BREAST CANCER
     Dosage: 600 MG/M2, Q2W, INTRAVENOUS
     Route: 042
     Dates: start: 20060322

REACTIONS (7)
  - BETA HAEMOLYTIC STREPTOCOCCAL INFECTION [None]
  - CELLULITIS [None]
  - CULTURE WOUND POSITIVE [None]
  - DISCOMFORT [None]
  - FOLLICULITIS [None]
  - HAEMOGLOBIN DECREASED [None]
  - PURULENT DISCHARGE [None]
